FAERS Safety Report 11804730 (Version 1)
Quarter: 2015Q4

REPORT INFORMATION
  Report Type: Spontaneous
  Country: US (occurrence: None)
  Receive Date: 20151203
  Receipt Date: 20151203
  Transmission Date: 20160305
  Serious: Yes (Life-Threatening)
  Sender: FDA-Public Use
  Company Number: None

PATIENT
  Age: 58 Year
  Sex: Male
  Weight: 61.23 kg

DRUGS (1)
  1. AMPHOTERICIN B. [Suspect]
     Active Substance: AMPHOTERICIN B
     Indication: PNEUMONIA
     Route: 042
     Dates: start: 20150606, end: 20150606

REACTIONS (4)
  - Heart rate increased [None]
  - Respiratory depression [None]
  - Infusion related reaction [None]
  - Blood pressure systolic increased [None]

NARRATIVE: CASE EVENT DATE: 20150606
